FAERS Safety Report 7520851-4 (Version None)
Quarter: 2011Q2

REPORT INFORMATION
  Report Type: 
  Country: None (occurrence: None)
  Receive Date: 20110603
  Receipt Date: 20100914
  Transmission Date: 20111010
  Serious: Yes (Hospitalization, Other)
  Sender: FDA-Public Use
  Company Number: US-BAYER-201030722NA

PATIENT
  Age: 55 Year
  Sex: Female
  Weight: 64 kg

DRUGS (8)
  1. YAZ [Suspect]
     Route: 048
     Dates: start: 20090101
  2. DROSPIRENONE AND ETHINYL ESTRADIOL [Suspect]
     Indication: PRODUCT USED FOR UNKNOWN INDICATION
  3. PREVACID [Concomitant]
     Indication: DYSPEPSIA
  4. PROZAC [Concomitant]
  5. YASMIN [Suspect]
     Indication: ORAL CONTRACEPTION
     Route: 048
     Dates: start: 19980101, end: 20080615
  6. IBUPROFEN [Concomitant]
  7. PREVPAC [Concomitant]
  8. YASMIN [Suspect]
     Indication: HORMONE REPLACEMENT THERAPY

REACTIONS (11)
  - HELICOBACTER TEST POSITIVE [None]
  - MUSCULOSKELETAL CHEST PAIN [None]
  - NEPHROLITHIASIS [None]
  - ABDOMINAL DISTENSION [None]
  - CHOLECYSTITIS CHRONIC [None]
  - CHOLELITHIASIS [None]
  - GASTROINTESTINAL DISORDER [None]
  - HAEMATOCHEZIA [None]
  - ABDOMINAL PAIN UPPER [None]
  - ABDOMINAL TENDERNESS [None]
  - ABDOMINAL DISCOMFORT [None]
